FAERS Safety Report 8591799-1 (Version None)
Quarter: 2012Q3

REPORT INFORMATION
  Report Type: 
  Country: None (occurrence: None)
  Receive Date: 20120814
  Receipt Date: 20120806
  Transmission Date: 20120928
  Serious: Yes (Hospitalization)
  Sender: FDA-Public Use
  Company Number: PHHY2011JP76086

PATIENT
  Sex: Female

DRUGS (14)
  1. TASIGNA [Suspect]
     Dosage: 200 MG, QD
     Route: 048
     Dates: start: 20110323, end: 20110324
  2. TAXOL [Suspect]
     Dosage: 230 MG,
     Dates: start: 20110817
  3. CARBOPLATIN [Suspect]
     Dosage: 642 MG,
     Dates: start: 20110817
  4. LOXONIN [Concomitant]
     Indication: RHEUMATOID ARTHRITIS
     Dosage: 180 MG, QD
     Route: 048
     Dates: start: 20110318
  5. TASIGNA [Suspect]
     Dosage: 400 MG,
     Route: 048
     Dates: start: 20110915, end: 20110927
  6. TASIGNA [Suspect]
     Dosage: 200 MG,
     Dates: start: 20111021, end: 20111209
  7. TASIGNA [Suspect]
     Dosage: 200 MG,
     Dates: start: 20120113
  8. TASIGNA [Suspect]
     Dosage: 200 MG,
     Dates: start: 20111226, end: 20120106
  9. ALENDRONATE SODIUM [Concomitant]
     Indication: RHEUMATOID ARTHRITIS
     Dosage: 35 MG, QD
     Route: 048
     Dates: start: 20110318
  10. TASIGNA [Suspect]
     Indication: CHRONIC MYELOID LEUKAEMIA
     Dosage: 800 MG, QD
     Route: 048
     Dates: start: 20110318, end: 20110320
  11. TASIGNA [Suspect]
     Dosage: 400 MG, QD
     Route: 048
     Dates: start: 20110325, end: 20110830
  12. PREDNISOLONE [Concomitant]
     Indication: RHEUMATOID ARTHRITIS
     Dosage: 5 MG, QD
     Route: 048
     Dates: start: 20110502
  13. LANSOPRAZOLE [Concomitant]
     Indication: RHEUMATOID ARTHRITIS
     Dosage: 30 MG, QD
     Route: 048
     Dates: start: 20110318
  14. DECADRON PHOSPHATE [Concomitant]
     Dosage: UNK UKN, UNK

REACTIONS (1)
  - UTERINE CANCER [None]
